FAERS Safety Report 6714303-9 (Version None)
Quarter: 2010Q2

REPORT INFORMATION
  Report Type: 
  Country: None (occurrence: None)
  Receive Date: 20100506
  Receipt Date: 20100422
  Transmission Date: 20101027
  Serious: Yes (Disabling, Other)
  Sender: FDA-Public Use
  Company Number: DE-BAUSCH-2010BL002157

PATIENT
  Sex: Female

DRUGS (3)
  1. TIMOMANN 0.25% AUGENTROPFEN [Suspect]
     Indication: OCULAR HYPERTENSION
     Route: 047
     Dates: start: 20100101, end: 20100101
  2. INTERFERON [Concomitant]
     Indication: DRUG USE FOR UNKNOWN INDICATION
  3. NUVARING [Concomitant]
     Indication: CONTRACEPTION

REACTIONS (4)
  - CONDITION AGGRAVATED [None]
  - MOVEMENT DISORDER [None]
  - MUSCLE ATROPHY [None]
  - MUSCULAR WEAKNESS [None]
